FAERS Safety Report 8270599-6 (Version None)
Quarter: 2012Q2

REPORT INFORMATION
  Report Type: 
  Country: None (occurrence: None)
  Receive Date: 20120410
  Receipt Date: 20120403
  Transmission Date: 20120825
  Serious: No
  Sender: FDA-Public Use
  Company Number: US-B.I. PHARMACEUTICALS,INC./RIDGEFIELD-2012-BP-06226BP

PATIENT
  Age: 84 Year
  Sex: Male

DRUGS (6)
  1. CRESTOR [Concomitant]
     Indication: BLOOD CHOLESTEROL INCREASED
     Dosage: 5 MG
     Route: 048
     Dates: start: 20111001
  2. NAMENDA [Concomitant]
     Indication: DEMENTIA ALZHEIMER'S TYPE
     Dosage: 20 MG
     Route: 048
     Dates: start: 20110601
  3. VERAPAMIL [Concomitant]
     Indication: ATRIAL FIBRILLATION
     Dosage: 360 MG
     Route: 048
     Dates: start: 19870101
  4. PRADAXA [Suspect]
     Indication: ATRIAL FIBRILLATION
     Dosage: 300 MG
     Route: 048
     Dates: start: 20111001
  5. ARICEPT [Concomitant]
     Indication: DEMENTIA ALZHEIMER'S TYPE
     Dosage: 10 MG
     Route: 048
     Dates: start: 20110601
  6. METROPROLOL XR [Concomitant]
     Indication: HYPERTENSION
     Dosage: 100 MG
     Route: 048
     Dates: start: 19970101

REACTIONS (1)
  - GINGIVAL INFECTION [None]
